FAERS Safety Report 9312155 (Version 1)
Quarter: 2013Q1

REPORT INFORMATION
  Report Type: Spontaneous
  Country: US (occurrence: None)
  Receive Date: 20130211
  Receipt Date: 20130211
  Transmission Date: 20140127
  Serious: No
  Sender: FDA-Public Use
  Company Number: 2012-00202

PATIENT
  Age: 33 Year
  Sex: Female

DRUGS (1)
  1. ZICAM COLD REMEDY PLUS ORAL MIST [Suspect]
     Indication: NASOPHARYNGITIS
     Dosage: INSERTED
     Route: 045
     Dates: start: 20121211, end: 20121215

REACTIONS (2)
  - Ageusia [None]
  - Anosmia [None]
